FAERS Safety Report 12647462 (Version 1)
Quarter: 2016Q3

REPORT INFORMATION
  Report Type: Spontaneous
  Country: US (occurrence: US)
  Receive Date: 20160812
  Receipt Date: 20160812
  Transmission Date: 20161109
  Serious: No
  Sender: FDA-Public Use
  Company Number: US-BRAINTREE LABORATORIES-160407

PATIENT
  Sex: Male

DRUGS (1)
  1. GOLYTELY [Suspect]
     Active Substance: POLYETHYLENE GLYCOL 3350\POTASSIUM CHLORIDE\SODIUM BICARBONATE\SODIUM CHLORIDE\SODIUM SULFATE ANHYDROUS
     Indication: COLONOSCOPY
     Dosage: ~0.5L
     Route: 048
     Dates: start: 20160605, end: 20160605

REACTIONS (4)
  - Product preparation error [None]
  - Vomiting [None]
  - Nausea [None]
  - Abdominal distension [None]

NARRATIVE: CASE EVENT DATE: 20160605
